FAERS Safety Report 4596601-0 (Version None)
Quarter: 2005Q1

REPORT INFORMATION
  Report Type: 
  Country: None (occurrence: None)
  Receive Date: 20050228
  Receipt Date: 20050214
  Transmission Date: 20050727
  Serious: Yes (Hospitalization)
  Sender: FDA-Public Use
  Company Number: 2005029225

PATIENT
  Age: 54 Year
  Sex: Female
  Weight: 68.0396 kg

DRUGS (6)
  1. NICOTROL [Suspect]
     Indication: SMOKING CESSATION THERAPY
     Dosage: ONE 21 MG PATCH EVERY 24 HOURS TRANSDERMAL
     Route: 062
     Dates: start: 20050127
  2. VENLAFAXINE HCL [Concomitant]
  3. PANTOPRAZOLE (PANTOPRAZOLE) [Concomitant]
  4. OXYCODONE HYDROCHLORIDE AND ACETAMINOPHEN [Concomitant]
  5. PREDNISONE [Concomitant]
  6. TRAZODONE (TRAZODONE) [Concomitant]

REACTIONS (1)
  - LUNG OPERATION [None]
